FAERS Safety Report 7788989-4 (Version None)
Quarter: 2011Q3

REPORT INFORMATION
  Report Type: 
  Country: None (occurrence: None)
  Receive Date: 20110930
  Receipt Date: 20110926
  Transmission Date: 20111222
  Serious: Yes (Death, Other)
  Sender: FDA-Public Use
  Company Number: PHHY2011US06903

PATIENT
  Sex: Male

DRUGS (16)
  1. DOPAMINE HCL [Concomitant]
     Dosage: UNK UKN, UNK
  2. PLAVIX [Concomitant]
     Dosage: 600 MG, UNK
  3. PREDNISONE [Concomitant]
     Dosage: 2.5 MG/ DAILY
  4. MAGNESIUM OXIDE [Concomitant]
     Dosage: 500 MG, BID
  5. LIPITOR [Concomitant]
     Dosage: 10 MG, UNK
  6. NEORAL [Suspect]
     Dosage: 75 MG, BID
  7. HEPARIN [Concomitant]
     Dosage: UNK UKN, UNK
  8. LEVOPHED [Concomitant]
     Dosage: UNK UKN, UNK
  9. NEORAL [Suspect]
     Indication: HEART TRANSPLANT
     Dosage: 25 MG, UNK
  10. BETA BLOCKING AGENTS [Concomitant]
     Dosage: UNK UKN, UNK
  11. BENAZEPRIL HYDROCHLORIDE [Concomitant]
     Dosage: 20 MG/ DAILY
  12. STEROIDS NOS [Concomitant]
     Dosage: UNK UKN, UNK
  13. ASPIRIN [Concomitant]
     Dosage: 325 MG, UNK
  14. ANGIOTENSIN CONVERTING ENZYME BLOCKERS [Concomitant]
     Dosage: UNK UKN, UNK
  15. MYCOPHENOLATE MOFETIL (CELLCEPT) [Concomitant]
     Dosage: 500 MG, BID
  16. LIDOCAINE [Concomitant]
     Dosage: UNK UKN, UNK

REACTIONS (23)
  - LEFT VENTRICULAR DYSFUNCTION [None]
  - BLOOD CREATINE INCREASED [None]
  - LEFT ATRIAL DILATATION [None]
  - TACHYCARDIA [None]
  - ANURIA [None]
  - HEPATIC ENZYME INCREASED [None]
  - OLIGURIA [None]
  - DYSPNOEA [None]
  - ELECTROCARDIOGRAM ST SEGMENT ELEVATION [None]
  - EJECTION FRACTION DECREASED [None]
  - VASCULITIS [None]
  - VENTRICULAR FIBRILLATION [None]
  - LEFT VENTRICULAR END-DIASTOLIC PRESSURE INCREASED [None]
  - ISCHAEMIC HEPATITIS [None]
  - CARDIOVASCULAR INSUFFICIENCY [None]
  - VENTRICULAR TACHYCARDIA [None]
  - SHOCK [None]
  - HYPOTENSION [None]
  - ACUTE MYOCARDIAL INFARCTION [None]
  - CHEST DISCOMFORT [None]
  - CORONARY ARTERY THROMBOSIS [None]
  - CORONARY ARTERY STENOSIS [None]
  - PYREXIA [None]
